FAERS Safety Report 9056893 (Version 6)
Quarter: 2013Q3

REPORT INFORMATION
  Report Type: Report from Study
  Country: US (occurrence: US)
  Receive Date: 20130201
  Receipt Date: 20130722
  Transmission Date: 20140515
  Serious: Yes (Hospitalization)
  Sender: FDA-Public Use
  Company Number: US-ACTELION-A-NJ2013-78573

PATIENT
  Age: 46 Year
  Sex: Male

DRUGS (4)
  1. TRACLEER [Suspect]
     Indication: PULMONARY ARTERIAL HYPERTENSION
     Dosage: UNK
     Route: 048
  2. ADCIRCA [Concomitant]
  3. PLAVIX [Concomitant]
  4. COUMADIN [Concomitant]

REACTIONS (9)
  - Lung disorder [Unknown]
  - Pulmonary embolism [Unknown]
  - Peripheral embolism [Unknown]
  - Fluid overload [Unknown]
  - Oedema [Unknown]
  - Syncope [Unknown]
  - Dyspnoea [Unknown]
  - Dyspnoea exertional [Unknown]
  - Anaemia [Unknown]
